FAERS Safety Report 15244126 (Version 1)
Quarter: 2018Q3

REPORT INFORMATION
  Report Type: Spontaneous
  Country: US (occurrence: US)
  Receive Date: 20180806
  Receipt Date: 20180806
  Transmission Date: 20181010
  Serious: Yes (Hospitalization, Other)
  Sender: FDA-Public Use
  Company Number: US-SAKK-2018SA171994AA

PATIENT
  Age: 58 Year
  Sex: Male
  Weight: 83.9 kg

DRUGS (23)
  1. NORMAL SALINE [Concomitant]
     Active Substance: SODIUM CHLORIDE
     Indication: FLUSHING
     Dosage: .9 % AS DIRECTED
     Route: 042
     Dates: start: 20180105
  2. EPINEPHRINE. [Concomitant]
     Active Substance: EPINEPHRINE
     Indication: ANAPHYLACTIC REACTION
     Dosage: 0.3 MG, PRN
     Route: 030
     Dates: start: 20180105
  3. LOXAPINE. [Concomitant]
     Active Substance: LOXAPINE
     Dosage: 8 MG, QD (EVERY EVENING)
     Route: 048
     Dates: start: 17001128
  4. LANTUS [Concomitant]
     Active Substance: INSULIN GLARGINE
     Dosage: 60 U, HS
     Route: 058
     Dates: start: 20160428
  5. NOVOLOG [Concomitant]
     Active Substance: INSULIN ASPART
     Dosage: 1 DF, TID
     Route: 058
     Dates: start: 20160428
  6. SEROQUEL [Concomitant]
     Active Substance: QUETIAPINE FUMARATE
     Dosage: 1 DF, HS
     Route: 048
     Dates: start: 20160428
  7. IBUPROFEN. [Concomitant]
     Active Substance: IBUPROFEN
     Dosage: UNK UNK, Q8H AS NEEDED
     Route: 048
     Dates: start: 20160428
  8. ZYPREXA [Concomitant]
     Active Substance: OLANZAPINE
     Dosage: 1 DF, HS
     Route: 048
     Dates: start: 20150602
  9. TRIAMCINOLONE [Concomitant]
     Active Substance: TRIAMCINOLONE
     Dosage: 1 DF, PRN
     Route: 061
     Dates: start: 20141210
  10. LOVASTATIN. [Concomitant]
     Active Substance: LOVASTATIN
     Dosage: 1 DF, QD
     Route: 048
     Dates: start: 20141210
  11. LISINOPRIL. [Concomitant]
     Active Substance: LISINOPRIL
     Dosage: 1 DF, QD
     Route: 048
     Dates: start: 20141210
  12. METFORMIN [Concomitant]
     Active Substance: METFORMIN HYDROCHLORIDE
     Dosage: 1 DF, QD
     Route: 048
     Dates: start: 20141210
  13. SODIUM CHLORIDE. [Concomitant]
     Active Substance: SODIUM CHLORIDE
     Indication: FLUSHING
     Dosage: 0.9 % AS DIRECTED
     Route: 042
     Dates: start: 20180105
  14. STERILE WATER [Concomitant]
     Active Substance: WATER
     Dosage: 10 ML AS DIRECTED
     Route: 042
     Dates: start: 20180105
  15. SUBOXONE [Concomitant]
     Active Substance: BUPRENORPHINE HYDROCHLORIDE\NALOXONE HYDROCHLORIDE
     Dosage: 8 MG, BID
     Route: 060
     Dates: start: 20170725
  16. PAROXETINE. [Concomitant]
     Active Substance: PAROXETINE
     Dosage: 1 DF, BID
     Route: 048
     Dates: start: 20160428
  17. GLIMEPIRIDE. [Concomitant]
     Active Substance: GLIMEPIRIDE
     Dosage: 1 DF
     Route: 048
     Dates: start: 20160428
  18. REMERON [Concomitant]
     Active Substance: MIRTAZAPINE
     Dosage: 1 DF, HS
     Route: 048
     Dates: start: 20160428
  19. BUTALBITAL APAP CAFFEINE [Concomitant]
     Dosage: 1 DF, Q8H
     Route: 048
     Dates: start: 20171210
  20. AMBIEN [Concomitant]
     Active Substance: ZOLPIDEM TARTRATE
     Dosage: 1 DF, HS
     Route: 048
     Dates: start: 20150602
  21. CEREZYME [Suspect]
     Active Substance: IMIGLUCERASE
     Indication: FABRY^S DISEASE
     Dosage: 4000 U, QOW
     Route: 041
     Dates: start: 20141211
  22. ENOXAPARIN [Concomitant]
     Active Substance: ENOXAPARIN
     Dosage: 120 MG, BID
     Route: 058
     Dates: start: 20170625
  23. TRAZODONE [Concomitant]
     Active Substance: TRAZODONE HYDROCHLORIDE
     Dosage: 1 DF, HS
     Route: 048
     Dates: start: 20150702

REACTIONS (2)
  - Catheter placement [Recovered/Resolved]
  - Pneumonia [Recovered/Resolved]

NARRATIVE: CASE EVENT DATE: 20180603
